FAERS Safety Report 13532697 (Version 1)
Quarter: 2017Q2

REPORT INFORMATION
  Report Type: Spontaneous
  Country: GB (occurrence: GB)
  Receive Date: 20170510
  Receipt Date: 20170510
  Transmission Date: 20170830
  Serious: Yes (Other)
  Sender: FDA-Public Use
  Company Number: GB-TEVA-766782ROM

PATIENT
  Sex: Female

DRUGS (8)
  1. AZATHIOPRINE. [Suspect]
     Active Substance: AZATHIOPRINE
     Indication: CUTANEOUS LUPUS ERYTHEMATOSUS
     Dosage: 50 MG PER DAY; LATER INCREASED TO 75 MG/DAY
     Route: 065
  2. TACROLIMUS. [Suspect]
     Active Substance: TACROLIMUS
     Indication: CUTANEOUS LUPUS ERYTHEMATOSUS
     Dosage: 4 MILLIGRAM DAILY;
     Route: 065
  3. PREDNISOLONE. [Suspect]
     Active Substance: PREDNISOLONE
     Dosage: 30 MG DAILY
     Route: 048
     Dates: start: 201601
  4. AZATHIOPRINE. [Suspect]
     Active Substance: AZATHIOPRINE
     Dosage: 75 MG DAILY
     Route: 065
     Dates: start: 201601
  5. TACROLIMUS. [Suspect]
     Active Substance: TACROLIMUS
     Route: 065
     Dates: start: 201601
  6. MYCOPHENOLATE MOFETIL. [Concomitant]
     Active Substance: MYCOPHENOLATE MOFETIL
     Indication: CUTANEOUS LUPUS ERYTHEMATOSUS
     Dosage: 1000 MILLIGRAM DAILY;
     Route: 065
     Dates: start: 201605
  7. PREDNISOLONE. [Suspect]
     Active Substance: PREDNISOLONE
     Indication: CUTANEOUS LUPUS ERYTHEMATOSUS
     Dosage: 20 MG/DAY
     Route: 048
  8. HYDROXYCHLOROQUINE [Concomitant]
     Active Substance: HYDROXYCHLOROQUINE
     Indication: CUTANEOUS LUPUS ERYTHEMATOSUS
     Dosage: 400 MILLIGRAM DAILY;
     Route: 065
     Dates: start: 201509

REACTIONS (4)
  - Staphylococcal sepsis [Unknown]
  - Premature labour [Unknown]
  - Gestational diabetes [Unknown]
  - Exposure during pregnancy [Unknown]
